FAERS Safety Report 9003477 (Version 1)
Quarter: 2013Q1

REPORT INFORMATION
  Report Type: Spontaneous
  Country: US (occurrence: US)
  Receive Date: 20130108
  Receipt Date: 20130108
  Transmission Date: 20140127
  Serious: Yes (Other)
  Sender: FDA-Public Use
  Company Number: CHPA2012US026080

PATIENT
  Age: 65 Year
  Sex: Female

DRUGS (3)
  1. 4 WAY FAST ACTING NASAL SPRAY [Suspect]
     Indication: NASOPHARYNGITIS
     Dosage: UNK, TWICE
     Route: 045
     Dates: start: 20121223, end: 20121223
  2. ALKA SELTZER PLUS SEVERE SINUS CONGESTION ALLERGY AND COUGH [Suspect]
     Indication: NASOPHARYNGITIS
     Dosage: 6 DF
     Route: 065
  3. DRUG THERAPY NOS [Concomitant]

REACTIONS (6)
  - Rash generalised [Unknown]
  - Rash erythematous [Unknown]
  - Pain [Unknown]
  - Discomfort [Unknown]
  - Expired drug administered [Unknown]
  - Drug administration error [Unknown]
